FAERS Safety Report 4817133-8 (Version None)
Quarter: 2005Q4

REPORT INFORMATION
  Report Type: 
  Country: None (occurrence: None)
  Receive Date: 20051101
  Receipt Date: 20050224
  Transmission Date: 20060501
  Serious: Yes (Hospitalization, Disabling)
  Sender: FDA-Public Use
  Company Number: US-ROCHE-396865

PATIENT
  Age: 31 Year
  Sex: Female
  Weight: 87.5 kg

DRUGS (1)
  1. ACCUTANE [Suspect]
     Indication: ACNE
     Route: 048
     Dates: start: 19970617, end: 19971015

REACTIONS (49)
  - ABDOMINAL PAIN [None]
  - ACNE [None]
  - BACK PAIN [None]
  - BETA HAEMOLYTIC STREPTOCOCCAL INFECTION [None]
  - BLOOD CHLORIDE INCREASED [None]
  - CARDIAC DISORDER [None]
  - CHEST PAIN [None]
  - CHOLECYSTITIS CHRONIC [None]
  - COUGH [None]
  - CULTURE URINE POSITIVE [None]
  - DIZZINESS [None]
  - DRUG INEFFECTIVE [None]
  - DYSPNOEA [None]
  - EMOTIONAL DISORDER [None]
  - FOCAL GLOMERULOSCLEROSIS [None]
  - GALLBLADDER DISORDER [None]
  - GASTROINTESTINAL DISORDER [None]
  - GASTROOESOPHAGEAL REFLUX DISEASE [None]
  - GOITRE [None]
  - HAEMATOCHEZIA [None]
  - HAEMOGLOBIN DECREASED [None]
  - HEADACHE [None]
  - HIGH DENSITY LIPOPROTEIN DECREASED [None]
  - HYPOACUSIS [None]
  - INTERTRIGO CANDIDA [None]
  - KIDNEY FIBROSIS [None]
  - LOW DENSITY LIPOPROTEIN INCREASED [None]
  - MEAN CELL HAEMOGLOBIN DECREASED [None]
  - MIDDLE INSOMNIA [None]
  - MULTI-ORGAN DISORDER [None]
  - NAUSEA [None]
  - NECK PAIN [None]
  - PROTEINURIA [None]
  - RED CELL DISTRIBUTION WIDTH INCREASED [None]
  - RENAL DISORDER [None]
  - ROAD TRAFFIC ACCIDENT [None]
  - SINUS DISORDER [None]
  - SUICIDE ATTEMPT [None]
  - TENSION HEADACHE [None]
  - UPPER RESPIRATORY TRACT INFECTION [None]
  - URINARY TRACT INFECTION [None]
  - UTERINE TENDERNESS [None]
  - VAGINAL DISCHARGE [None]
  - VAGINITIS BACTERIAL [None]
  - VERTIGO [None]
  - VISION BLURRED [None]
  - VOMITING [None]
  - VULVOVAGINAL MYCOTIC INFECTION [None]
  - WEIGHT INCREASED [None]
